FAERS Safety Report 7818553-X (Version None)
Quarter: 2011Q4

REPORT INFORMATION
  Report Type: 
  Country: None (occurrence: None)
  Receive Date: 20111017
  Receipt Date: 20111007
  Transmission Date: 20120403
  Serious: Yes (Hospitalization, Other)
  Sender: FDA-Public Use
  Company Number: US-ASTRAZENECA-2011SE58842

PATIENT
  Sex: Female

DRUGS (1)
  1. NEXIUM [Suspect]
     Route: 048

REACTIONS (7)
  - PERIORBITAL HAEMATOMA [None]
  - BACK INJURY [None]
  - ACCIDENT [None]
  - HAEMORRHAGE [None]
  - FALL [None]
  - MULTIPLE INJURIES [None]
  - MALLORY-WEISS SYNDROME [None]
